FAERS Safety Report 5799916-3 (Version None)
Quarter: 2008Q3

REPORT INFORMATION
  Report Type: 
  Country: None (occurrence: None)
  Receive Date: 20080701
  Receipt Date: 20080617
  Transmission Date: 20090109
  Serious: Yes (Hospitalization)
  Sender: FDA-Public Use
  Company Number: 2008SP011948

PATIENT
  Age: 51 Year
  Sex: Female
  Weight: 68.49 kg

DRUGS (11)
  1. TEMODAR [Suspect]
     Indication: GLIOBLASTOMA MULTIFORME
     Dosage: 75 MG/M2; QD; PO
     Route: 048
     Dates: start: 20080519
  2. DECADRON [Suspect]
     Indication: GLIOBLASTOMA MULTIFORME
     Dosage: 4 MG BID PO; 8 MG BID PO; 4 MG TID; 4 MG BID
     Route: 048
     Dates: start: 20080523, end: 20080529
  3. DECADRON [Suspect]
     Indication: GLIOBLASTOMA MULTIFORME
     Dosage: 4 MG BID PO; 8 MG BID PO; 4 MG TID; 4 MG BID
     Route: 048
     Dates: start: 20080530, end: 20080601
  4. DECADRON [Suspect]
     Indication: GLIOBLASTOMA MULTIFORME
     Dosage: 4 MG BID PO; 8 MG BID PO; 4 MG TID; 4 MG BID
     Route: 048
     Dates: start: 20080602, end: 20080608
  5. DECADRON [Suspect]
     Indication: GLIOBLASTOMA MULTIFORME
     Dosage: 4 MG BID PO; 8 MG BID PO; 4 MG TID; 4 MG BID
     Route: 048
     Dates: start: 20080609
  6. LOVENOX [Concomitant]
  7. DIFLUCAN [Concomitant]
  8. MULTI-VITAMIN [Concomitant]
  9. PRILOSEC [Concomitant]
  10. KEPPRA [Concomitant]
  11. LISINOPRIL [Concomitant]

REACTIONS (21)
  - ABASIA [None]
  - ABNORMAL BEHAVIOUR [None]
  - ADJUSTMENT DISORDER [None]
  - AGITATION [None]
  - ANXIETY [None]
  - COGNITIVE DISORDER [None]
  - CONFUSIONAL STATE [None]
  - DEHYDRATION [None]
  - DELIRIUM [None]
  - DEPRESSION [None]
  - FATIGUE [None]
  - HAEMOGLOBIN ABNORMAL [None]
  - HYPERGLYCAEMIA [None]
  - HYPOCALCAEMIA [None]
  - HYPONATRAEMIA [None]
  - LYMPHOPENIA [None]
  - MENTAL STATUS CHANGES [None]
  - MOOD ALTERED [None]
  - MUSCULAR WEAKNESS [None]
  - ORAL CANDIDIASIS [None]
  - PERSONALITY DISORDER [None]
